FAERS Safety Report 8398463-2 (Version None)
Quarter: 2012Q2

REPORT INFORMATION
  Report Type: 
  Country: None (occurrence: None)
  Receive Date: 20120531
  Receipt Date: 20110427
  Transmission Date: 20120825
  Serious: No
  Sender: FDA-Public Use
  Company Number: US-NOVEN-11US002356

PATIENT
  Sex: Male
  Weight: 48.98 kg

DRUGS (4)
  1. CONCERTA [Concomitant]
     Dosage: 56 MG, SINGLE
     Dates: start: 20110423, end: 20110423
  2. CONCERTA [Concomitant]
     Indication: ATTENTION DEFICIT/HYPERACTIVITY DISORDER
     Dosage: 56 MG, QD
     Route: 048
  3. DAYTRANA [Suspect]
     Indication: ATTENTION DEFICIT/HYPERACTIVITY DISORDER
     Dosage: 10 MG, QD
     Route: 062
     Dates: start: 20110420
  4. DAYTRANA [Suspect]
     Dosage: UNK
     Route: 062

REACTIONS (5)
  - DRUG DOSE OMISSION [None]
  - INCORRECT DRUG ADMINISTRATION DURATION [None]
  - NO ADVERSE EVENT [None]
  - PRODUCT QUALITY ISSUE [None]
  - DRUG ADMINISTRATION ERROR [None]
